FAERS Safety Report 4712993-3 (Version None)
Quarter: 2005Q3

REPORT INFORMATION
  Report Type: 
  Country: None (occurrence: None)
  Receive Date: 20050711
  Receipt Date: 20050627
  Transmission Date: 20060218
  Serious: Yes (Death, Hospitalization)
  Sender: FDA-Public Use
  Company Number: ENTC2005-0174

PATIENT
  Sex: Male

DRUGS (3)
  1. STALEVO 100 [Suspect]
     Dosage: ORAL
     Route: 048
  2. EXELON [Suspect]
     Dosage: ORAL
     Route: 048
  3. ANDROCUR [Suspect]
     Dosage: ORAL
     Route: 048

REACTIONS (2)
  - HEPATITIS [None]
  - PULMONARY EMBOLISM [None]
